FAERS Safety Report 8667017 (Version 2)
Quarter: 2015Q2

REPORT INFORMATION
  Report Type: Report from Study
  Country: US (occurrence: US)
  Receive Date: 20120716
  Receipt Date: 20150629
  Transmission Date: 20150821
  Serious: Yes (Death, Other)
  Sender: FDA-Public Use
  Company Number: US-ROCHE-1086968

PATIENT
  Sex: Female

DRUGS (6)
  1. HUMALOG [Concomitant]
     Active Substance: INSULIN LISPRO
  2. ZYMAR [Concomitant]
     Active Substance: GATIFLOXACIN
     Route: 065
  3. CORTISONE [Concomitant]
     Active Substance: CORTISONE\HYDROCORTISONE
  4. LORAZEPAM. [Concomitant]
     Active Substance: LORAZEPAM
  5. LUCENTIS [Suspect]
     Active Substance: RANIBIZUMAB
     Indication: DIABETIC RETINOPATHY
     Route: 050
     Dates: start: 20080709, end: 20080820
  6. LANTUS [Concomitant]
     Active Substance: INSULIN GLARGINE

REACTIONS (9)
  - Dry eye [Unknown]
  - Sluggishness [Unknown]
  - Death [Fatal]
  - Off label use [Unknown]
  - Retinal exudates [Unknown]
  - Visual acuity reduced [Unknown]
  - Pyrexia [Unknown]
  - Ill-defined disorder [Fatal]
  - Blindness [Unknown]
